FAERS Safety Report 21919236 (Version 1)
Quarter: 2023Q1

REPORT INFORMATION
  Report Type: Spontaneous
  Country: IT (occurrence: IT)
  Receive Date: 20230127
  Receipt Date: 20230127
  Transmission Date: 20230417
  Serious: Yes (Other)
  Sender: FDA-Public Use
  Company Number: None

PATIENT
  Age: 45 Year
  Sex: Female

DRUGS (13)
  1. ETOPOSIDE [Suspect]
     Active Substance: ETOPOSIDE
     Indication: Diffuse large B-cell lymphoma
     Dosage: 1ST LINE SYSTEMIC TREATMENT, RITUXIMAB-M-CODOX-IVAC
     Dates: start: 20210626, end: 20210929
  2. METHOTREXATE [Suspect]
     Active Substance: METHOTREXATE
     Indication: Diffuse large B-cell lymphoma
     Dosage: 1ST LINE SYSTEMIC TREATMENT, RITUXIMAB-M-CODOX-IVAC
     Dates: start: 20210626, end: 20210929
  3. BENDAMUSTINE [Suspect]
     Active Substance: BENDAMUSTINE
     Indication: Diffuse large B-cell lymphoma
     Dates: start: 20220412, end: 20220510
  4. CYTARABINE [Suspect]
     Active Substance: CYTARABINE
     Indication: Diffuse large B-cell lymphoma
     Dosage: 1ST LINE SYSTEMIC TREATMENT, RITUXIMAB-M-CODOX-IVAC
     Dates: start: 20210626, end: 20210929
  5. DOXORUBICIN [Suspect]
     Active Substance: DOXORUBICIN
     Indication: Diffuse large B-cell lymphoma
     Dosage: 1ST LINE SYSTEMIC TREATMENT, RITUXIMAB-M-CODOX-IVAC
     Dates: start: 20210626, end: 20210929
  6. LENALIDOMIDE [Suspect]
     Active Substance: LENALIDOMIDE
     Indication: Diffuse large B-cell lymphoma
     Dosage: 4TH LINE SYSTEMIC TREATMENT, LENALIDOMIDE, RITUXIMAB
     Dates: start: 20221104
  7. CYCLOPHOSPHAMIDE [Suspect]
     Active Substance: CYCLOPHOSPHAMIDE
     Indication: Diffuse large B-cell lymphoma
     Dosage: 1ST LINE SYSTEMIC TREATMENT, RITUXIMAB-M-CODOX-IVAC
     Dates: start: 20210626, end: 20210929
  8. IFOSFAMIDE [Suspect]
     Active Substance: IFOSFAMIDE
     Indication: Diffuse large B-cell lymphoma
     Dosage: 1ST LINE SYSTEMIC TREATMENT, RITUXIMAB-M-CODOX-IVAC
     Dates: start: 20210626, end: 20210929
  9. POLATUZUMAB VEDOTIN [Suspect]
     Active Substance: POLATUZUMAB VEDOTIN
     Indication: Diffuse large B-cell lymphoma
     Dosage: 2ND LINE SYSTEMIC TREATMENT, RITUXIMAB-BENDAMUSTINE-POLATUZUMAB
     Dates: start: 20220412, end: 20220510
  10. RITUXIMAB [Suspect]
     Active Substance: RITUXIMAB
     Indication: Diffuse large B-cell lymphoma
     Dosage: 4TH LINE SYSTEMIC TREATMENT, LENALIDOMIDE, RITUXIMAB
     Dates: start: 20221104
  11. VINCRISTINE [Suspect]
     Active Substance: VINCRISTINE
     Indication: Diffuse large B-cell lymphoma
     Dosage: 1ST LINE SYSTEMIC TREATMENT, RITUXIMAB-M-CODOX-IVAC
     Dates: start: 20210626, end: 20210929
  12. RITUXIMAB [Suspect]
     Active Substance: RITUXIMAB
     Indication: Diffuse large B-cell lymphoma
     Dosage: 1ST SYSTEMIC TREATMENT, RITUXIMAB-M-CODOX-IVAC
     Dates: start: 20210626, end: 20210929
  13. RITUXIMAB [Suspect]
     Active Substance: RITUXIMAB
     Indication: Diffuse large B-cell lymphoma
     Dosage: 2ND LINE SYSTEMIC TREATMENT, RITUXIMAB-BENDAMUSTINE-POLATUZUMAB
     Dates: start: 20220412, end: 20220510

REACTIONS (3)
  - Off label use [Unknown]
  - Disease progression [Unknown]
  - Diffuse large B-cell lymphoma [Unknown]
